FAERS Safety Report 8363195-3 (Version None)
Quarter: 2012Q2

REPORT INFORMATION
  Report Type: 
  Country: None (occurrence: None)
  Receive Date: 20120516
  Receipt Date: 20111121
  Transmission Date: 20120825
  Serious: No
  Sender: FDA-Public Use
  Company Number: US-ALEXION-A201101763

PATIENT
  Sex: Male
  Weight: 93.88 kg

DRUGS (2)
  1. SOLIRIS [Suspect]
     Indication: PAROXYSMAL NOCTURNAL HAEMOGLOBINURIA
     Dosage: 900 MG, Q2W
     Route: 042
     Dates: start: 20111114
  2. FOLIC ACID [Concomitant]
     Dosage: 1 MG, QD

REACTIONS (2)
  - URINARY TRACT INFECTION [None]
  - PROSTATITIS [None]
